FAERS Safety Report 13330085 (Version 2)
Quarter: 2017Q2

REPORT INFORMATION
  Report Type: Spontaneous
  Country: US (occurrence: US)
  Receive Date: 20170313
  Receipt Date: 20170425
  Transmission Date: 20170830
  Serious: Yes (Death)
  Sender: FDA-Public Use
  Company Number: US-TAIHO ONCOLOGY INC-EU-2017-00436

PATIENT
  Age: 62 Year
  Sex: Male

DRUGS (11)
  1. LONSURF [Suspect]
     Active Substance: TIPIRACIL HYDROCHLORIDE\TRIFLURIDINE
     Indication: COLON CANCER
     Route: 048
     Dates: start: 20170117
  2. FUROSEMIDE. [Concomitant]
     Active Substance: FUROSEMIDE
     Dosage: NI
  3. PARACETAMOL/HYDROCODONE BITARTRATE [Concomitant]
     Dosage: NI
  4. MORPHINE [Concomitant]
     Active Substance: MORPHINE
     Dosage: NI
  5. SUCRALFATE. [Concomitant]
     Active Substance: SUCRALFATE
     Dosage: NI
  6. URSODEOXYCHOLIC ACID [Concomitant]
     Active Substance: URSODIOL
     Dosage: NI
  7. HYDROCHLOROTHIAZIDE. [Concomitant]
     Active Substance: HYDROCHLOROTHIAZIDE
     Dosage: NI
  8. LEVOTHYROXINE SODIUM. [Concomitant]
     Active Substance: LEVOTHYROXINE SODIUM
     Dosage: NI
  9. LACTULOSE. [Concomitant]
     Active Substance: LACTULOSE
     Dosage: NI
  10. FOSINOPRIL [Concomitant]
     Active Substance: FOSINOPRIL
     Dosage: NI
  11. SPIRONOLACTONE. [Concomitant]
     Active Substance: SPIRONOLACTONE
     Dosage: NI

REACTIONS (1)
  - Disease progression [Fatal]

NARRATIVE: CASE EVENT DATE: 20170301
